FAERS Safety Report 11681413 (Version 2)
Quarter: 2015Q4

REPORT INFORMATION
  Report Type: Spontaneous
  Country: CN (occurrence: CN)
  Receive Date: 20151029
  Receipt Date: 20151120
  Transmission Date: 20160304
  Serious: Yes (Other)
  Sender: FDA-Public Use
  Company Number: CN-BEH-2015054952

PATIENT
  Age: 53 Year
  Sex: Male
  Weight: 115 kg

DRUGS (4)
  1. ALBUMIN [Suspect]
     Active Substance: ALBUMIN (HUMAN)
     Indication: BRAIN OEDEMA
  2. MANNITOL. [Suspect]
     Active Substance: MANNITOL
     Indication: BRAIN OEDEMA
  3. BLOOD SUBSTITUTES AND PLASMA PROTEIN FRACTION [Suspect]
     Active Substance: UNSPECIFIED INGREDIENT
     Indication: BRAIN OEDEMA
     Route: 041
  4. LEVOTHYROXINE SODIUM. [Concomitant]
     Active Substance: LEVOTHYROXINE SODIUM
     Indication: HYPOTHYROIDISM
     Route: 048

REACTIONS (2)
  - Drug ineffective [Unknown]
  - Brain oedema [Unknown]
